FAERS Safety Report 20798801 (Version 2)
Quarter: 2022Q2

REPORT INFORMATION
  Report Type: Report from Study
  Country: BR (occurrence: BR)
  Receive Date: 20220507
  Receipt Date: 20220520
  Transmission Date: 20220720
  Serious: Yes (Other)
  Sender: FDA-Public Use
  Company Number: BR-NOVARTISPH-NVSC2019BR028212

PATIENT
  Sex: Male
  Weight: 74 kg

DRUGS (6)
  1. COSENTYX [Suspect]
     Active Substance: SECUKINUMAB
     Indication: Psoriasis
     Dosage: 300 MG
     Route: 065
     Dates: start: 20190830
  2. COSENTYX [Suspect]
     Active Substance: SECUKINUMAB
     Dosage: UNK
     Route: 065
     Dates: start: 20191027
  3. COSENTYX [Suspect]
     Active Substance: SECUKINUMAB
     Dosage: UNK
     Route: 065
     Dates: start: 20200301
  4. COSENTYX [Suspect]
     Active Substance: SECUKINUMAB
     Dosage: UNK
     Route: 065
     Dates: start: 20220404
  5. LOSARTAN [Suspect]
     Active Substance: LOSARTAN
     Indication: Hypertension
     Dosage: 1 DOSAGE FORM (50 MG), QD
     Route: 048
  6. NPH INSULIN [Concomitant]
     Active Substance: INSULIN BEEF
     Indication: Diabetes mellitus
     Dosage: 50 U, BID (AMPOULE, IN THE BELLY)
     Route: 065

REACTIONS (14)
  - Skin cancer [Unknown]
  - Pruritus [Not Recovered/Not Resolved]
  - Ear haemorrhage [Unknown]
  - Drug hypersensitivity [Recovering/Resolving]
  - Rash macular [Recovered/Resolved]
  - Neck mass [Unknown]
  - Ear swelling [Recovered/Resolved]
  - Blister [Recovering/Resolving]
  - Pain [Recovering/Resolving]
  - Scab [Unknown]
  - Erythema [Recovered/Resolved]
  - Scratch [Unknown]
  - Inappropriate schedule of product administration [Unknown]
  - Drug ineffective [Unknown]
